FAERS Safety Report 13828044 (Version 1)
Quarter: 2017Q3

REPORT INFORMATION
  Report Type: Spontaneous
  Country: US (occurrence: US)
  Receive Date: 20170802
  Receipt Date: 20170802
  Transmission Date: 20171127
  Serious: Yes (Hospitalization)
  Sender: FDA-Public Use
  Company Number: None

PATIENT
  Age: 63 Year
  Sex: Male
  Weight: 136.7 kg

DRUGS (4)
  1. CHLORTHALIDONE. [Concomitant]
     Active Substance: CHLORTHALIDONE
  2. MEMANTINE HYDROCHLORIDE. [Suspect]
     Active Substance: MEMANTINE HYDROCHLORIDE
     Dates: end: 20170710
  3. XARELTO [Concomitant]
     Active Substance: RIVAROXABAN
  4. XELODA [Concomitant]
     Active Substance: CAPECITABINE

REACTIONS (10)
  - Asthenia [None]
  - Leukopenia [None]
  - Neutropenia [None]
  - Haemodynamic instability [None]
  - Haemorrhoids [None]
  - Hypokalaemia [None]
  - Rectal haemorrhage [None]
  - Atrial fibrillation [None]
  - Hypomagnesaemia [None]
  - Hypocalcaemia [None]

NARRATIVE: CASE EVENT DATE: 20170710
